FAERS Safety Report 6277759-4 (Version None)
Quarter: 2009Q3

REPORT INFORMATION
  Report Type: 
  Country: None (occurrence: None)
  Receive Date: 20090722
  Receipt Date: 20090716
  Transmission Date: 20100115
  Serious: Yes (Hospitalization)
  Sender: FDA-Public Use
  Company Number: B0584320A

PATIENT
  Sex: Male

DRUGS (21)
  1. DEROXAT [Suspect]
     Indication: DRUG USE FOR UNKNOWN INDICATION
     Route: 048
     Dates: start: 20090116
  2. MOPRAL [Suspect]
     Indication: DRUG USE FOR UNKNOWN INDICATION
     Dosage: 20MG PER DAY
     Route: 048
     Dates: start: 20090206
  3. ARANESP [Suspect]
     Indication: DRUG USE FOR UNKNOWN INDICATION
     Route: 058
     Dates: start: 20090207
  4. HUMALOG [Suspect]
     Indication: DRUG USE FOR UNKNOWN INDICATION
     Dosage: 4IU PER DAY
     Route: 058
     Dates: start: 20090207
  5. BACTRIM ADULT [Suspect]
     Indication: DRUG USE FOR UNKNOWN INDICATION
     Route: 048
     Dates: start: 20090107
  6. SOLU-MEDROL [Suspect]
     Indication: DRUG USE FOR UNKNOWN INDICATION
     Dosage: 20MG PER DAY
     Route: 042
     Dates: start: 20090206, end: 20090212
  7. MAGNE B6 [Concomitant]
     Route: 048
     Dates: start: 20090128
  8. NEBIVOLOL [Concomitant]
     Dosage: 5MG PER DAY
     Route: 065
     Dates: end: 20090202
  9. IMODIUM [Concomitant]
     Dosage: 2MG TWICE PER DAY
     Route: 065
     Dates: end: 20090204
  10. IMUREL [Concomitant]
     Dosage: 50MG TWICE PER DAY
     Route: 065
  11. NEXIUM [Concomitant]
     Dosage: 20MG PER DAY
     Route: 065
     Dates: end: 20090206
  12. NEORAL [Concomitant]
     Dosage: 125MG TWICE PER DAY
     Route: 065
  13. SOLUPRED [Concomitant]
     Dosage: 20MG PER DAY
     Route: 065
  14. SPECIAFOLDINE [Concomitant]
     Dosage: 5MG PER DAY
     Route: 065
     Dates: end: 20090131
  15. XANAX [Concomitant]
     Dosage: .25MG PER DAY
     Route: 065
     Dates: end: 20090110
  16. TARGOCID [Concomitant]
     Route: 065
     Dates: start: 20090107, end: 20090110
  17. AUGMENTIN [Concomitant]
     Route: 065
     Dates: start: 20090110, end: 20090120
  18. TRIFLUCAN [Concomitant]
     Route: 065
     Dates: start: 20090112, end: 20090121
  19. DIFFU K [Concomitant]
     Route: 065
     Dates: start: 20090107
  20. PRIMPERAN [Concomitant]
     Route: 065
     Dates: start: 20090110, end: 20090207
  21. UN-ALFA [Concomitant]
     Route: 065
     Dates: start: 20090115

REACTIONS (3)
  - HEPATITIS [None]
  - HEPATITIS CHOLESTATIC [None]
  - PANCREATITIS [None]
